FAERS Safety Report 8007157-4 (Version None)
Quarter: 2011Q4

REPORT INFORMATION
  Report Type: 
  Country: None (occurrence: None)
  Receive Date: 20111227
  Receipt Date: 20111216
  Transmission Date: 20120403
  Serious: No
  Sender: FDA-Public Use
  Company Number: US-JNJFOC-20111208766

PATIENT
  Sex: Female

DRUGS (2)
  1. RISPERDAL CONSTA [Suspect]
     Indication: PRODUCT USED FOR UNKNOWN INDICATION
     Route: 030
     Dates: start: 20100501, end: 20101101
  2. INVEGA SUSTENNA [Suspect]
     Indication: PRODUCT USED FOR UNKNOWN INDICATION
     Route: 030
     Dates: start: 20101201, end: 20110301

REACTIONS (6)
  - EYELID PTOSIS [None]
  - SKIN WRINKLING [None]
  - EYE SWELLING [None]
  - MEMORY IMPAIRMENT [None]
  - SKIN ATROPHY [None]
  - ALOPECIA [None]
